FAERS Safety Report 10979405 (Version 1)
Quarter: 2015Q2

REPORT INFORMATION
  Report Type: Spontaneous
  Country: US (occurrence: US)
  Receive Date: 20150402
  Receipt Date: 20150402
  Transmission Date: 20150821
  Serious: Yes (Other)
  Sender: FDA-Public Use
  Company Number: US-BAYER-2015-086850

PATIENT
  Age: 56 Year
  Sex: Male

DRUGS (4)
  1. IBUPROFEN. [Suspect]
     Active Substance: IBUPROFEN
  2. ACETYLSALICYLIC ACID({=100 MG) [Suspect]
     Active Substance: ASPIRIN
     Dosage: DESENSITIZATION
  3. ACETYLSALICYLIC ACID({=100 MG) [Suspect]
     Active Substance: ASPIRIN
     Dosage: 650 MG, BID
  4. ACETYLSALICYLIC ACID({=100 MG) [Suspect]
     Active Substance: ASPIRIN
     Dosage: UNK

REACTIONS (11)
  - Rhinorrhoea [None]
  - Respiratory disorder [None]
  - Forced expiratory flow decreased [None]
  - Lacrimation increased [None]
  - Aspirin-exacerbated respiratory disease [None]
  - Rhinitis allergic [None]
  - Anosmia [None]
  - Flushing [None]
  - Ageusia [None]
  - Nasal polyps [None]
  - Asthma [None]
